FAERS Safety Report 10564996 (Version 1)
Quarter: 2014Q4

REPORT INFORMATION
  Report Type: Spontaneous
  Country: US (occurrence: None)
  Receive Date: 20141104
  Receipt Date: 20141104
  Transmission Date: 20150529
  Serious: Yes (Other)
  Sender: FDA-Public Use
  Company Number: None

PATIENT
  Age: 73 Year
  Sex: Male
  Weight: 103 kg

DRUGS (1)
  1. IMBRUVICA [Suspect]
     Active Substance: IBRUTINIB
     Dosage: HENCE PLEASE NOTE POSSIBLE BLURRED VISION FOR THIS.

REACTIONS (3)
  - Discomfort [None]
  - Eyelid disorder [None]
  - Vision blurred [None]

NARRATIVE: CASE EVENT DATE: 201406
